FAERS Safety Report 14309092 (Version 1)
Quarter: 2017Q4

REPORT INFORMATION
  Report Type: Spontaneous
  Country: US (occurrence: US)
  Receive Date: 20171220
  Receipt Date: 20171220
  Transmission Date: 20180321
  Serious: No
  Sender: FDA-Public Use
  Company Number: US-BIOGEN-2016BI00217651

PATIENT
  Age: 62 Year
  Sex: Female

DRUGS (2)
  1. AVONEX [Suspect]
     Active Substance: INTERFERON BETA-1A
     Route: 030
     Dates: start: 20160328
  2. AVONEX [Suspect]
     Active Substance: INTERFERON BETA-1A
     Indication: MULTIPLE SCLEROSIS
     Route: 030
     Dates: start: 20021216, end: 20150720

REACTIONS (5)
  - Drug ineffective [Recovered/Resolved]
  - Hypersomnia [Recovered/Resolved]
  - Influenza like illness [Unknown]
  - Multiple sclerosis [Unknown]
  - Pain [Unknown]

NARRATIVE: CASE EVENT DATE: 20150722
